FAERS Safety Report 21768671 (Version 1)
Quarter: 2022Q4

REPORT INFORMATION
  Report Type: Spontaneous
  Country: US (occurrence: None)
  Receive Date: 20221222
  Receipt Date: 20221222
  Transmission Date: 20230113
  Serious: Yes (Hospitalization)
  Sender: FDA-Public Use
  Company Number: None

PATIENT
  Age: 89 Year
  Sex: Male
  Weight: 84.1 kg

DRUGS (1)
  1. GEMCITABINE HYDROCHLORIDE [Suspect]
     Active Substance: GEMCITABINE HYDROCHLORIDE
     Dates: end: 20221213

REACTIONS (22)
  - Nausea [None]
  - Abdominal pain [None]
  - Vomiting [None]
  - Constipation [None]
  - Dyspepsia [None]
  - Hypophagia [None]
  - Diarrhoea [None]
  - Abdominal distension [None]
  - Fatigue [None]
  - Chills [None]
  - Small intestinal obstruction [None]
  - Pleural effusion [None]
  - Pulmonary mass [None]
  - Pancreatic mass [None]
  - Body fat disorder [None]
  - Diverticulitis [None]
  - Hydronephrosis [None]
  - Ureterolithiasis [None]
  - Abdominal infection [None]
  - Deep vein thrombosis [None]
  - Varicose vein [None]
  - Deep vein thrombosis [None]

NARRATIVE: CASE EVENT DATE: 20221219
